FAERS Safety Report 9861662 (Version 2)
Quarter: 2014Q1

REPORT INFORMATION
  Report Type: Report from Study
  Country: GB (occurrence: GB)
  Receive Date: 20140203
  Receipt Date: 20140203
  Transmission Date: 20141002
  Serious: Yes (Hospitalization)
  Sender: FDA-Public Use
  Company Number: GB-ROCHE-1333988

PATIENT
  Age: 42 Year
  Sex: Female

DRUGS (5)
  1. RIBAVIRIN [Suspect]
     Indication: CHRONIC HEPATITIS C
     Route: 048
     Dates: start: 20131002, end: 20131124
  2. PEG-INTERFERON ALFA 2A [Suspect]
     Indication: CHRONIC HEPATITIS C
     Route: 058
     Dates: start: 20131002
  3. TELAPREVIR [Suspect]
     Indication: CHRONIC HEPATITIS C
     Route: 048
     Dates: start: 20131002
  4. COLLOIDAL OATMEAL [Concomitant]
  5. ACETAMINOPHEN [Concomitant]
     Route: 065
     Dates: start: 20131002

REACTIONS (3)
  - Urinary tract infection [Recovered/Resolved]
  - Anaemia [Unknown]
  - Leukopenia [Unknown]
